FAERS Safety Report 22151477 (Version 1)
Quarter: 2023Q1

REPORT INFORMATION
  Report Type: Report from Study
  Country: GB (occurrence: GB)
  Receive Date: 20230329
  Receipt Date: 20230329
  Transmission Date: 20230417
  Serious: Yes (Other)
  Sender: FDA-Public Use
  Company Number: GB-TAKEDA-2022TUS050351

PATIENT
  Age: 18 Year
  Sex: Male

DRUGS (1)
  1. VEDOLIZUMAB [Suspect]
     Active Substance: VEDOLIZUMAB
     Indication: Colitis ulcerative
     Dosage: 108 MILLIGRAM, Q2WEEKS
     Route: 058

REACTIONS (13)
  - Colitis ulcerative [Unknown]
  - Joint swelling [Unknown]
  - Fatigue [Unknown]
  - Injection site mass [Unknown]
  - Illness [Unknown]
  - Injection site pain [Unknown]
  - Injection site swelling [Unknown]
  - Fear of injection [Unknown]
  - Product temperature excursion issue [Unknown]
  - Product dose omission issue [Unknown]
  - Incorrect dose administered [Unknown]
  - Product administration error [Unknown]
  - Nausea [Unknown]

NARRATIVE: CASE EVENT DATE: 20220721
